FAERS Safety Report 17440746 (Version 1)
Quarter: 2020Q1

REPORT INFORMATION
  Report Type: Report from Study
  Country: US (occurrence: US)
  Receive Date: 20200220
  Receipt Date: 20200220
  Transmission Date: 20200409
  Serious: Yes (Hospitalization)
  Sender: FDA-Public Use
  Company Number: US-GILEAD-2020-0451720

PATIENT
  Sex: Female

DRUGS (3)
  1. VELETRI [Concomitant]
     Active Substance: EPOPROSTENOL
  2. UPTRAVI [Suspect]
     Active Substance: SELEXIPAG
     Indication: PRODUCT USED FOR UNKNOWN INDICATION
     Route: 065
  3. AMBRISENTAN [Suspect]
     Active Substance: AMBRISENTAN
     Indication: PRODUCT USED FOR UNKNOWN INDICATION
     Dosage: 10 MG
     Route: 065

REACTIONS (3)
  - Swelling [Unknown]
  - Dyspnoea [Unknown]
  - Blood pressure abnormal [Unknown]
